FAERS Safety Report 24258828 (Version 1)
Quarter: 2024Q3

REPORT INFORMATION
  Report Type: Spontaneous
  Country: US (occurrence: US)
  Receive Date: 20240828
  Receipt Date: 20240828
  Transmission Date: 20241017
  Serious: No
  Sender: PFIZER
  Company Number: US-PFIZER INC-202400243355

PATIENT
  Age: 72 Year
  Sex: Male

DRUGS (9)
  1. PAXLOVID [Suspect]
     Active Substance: NIRMATRELVIR\RITONAVIR
     Indication: COVID-19
     Dosage: [NIRMATRELVIR 300 MG]/[RITONAVIR 100 MG]; 2X/DAY
     Dates: start: 20240821
  2. ATORVASTATIN [Concomitant]
     Active Substance: ATORVASTATIN
     Dates: start: 201401, end: 20240820
  3. CHLORTHALIDONE [Concomitant]
     Active Substance: CHLORTHALIDONE
     Dates: start: 201401
  4. LISINOPRIL [Concomitant]
     Active Substance: LISINOPRIL
     Dates: start: 201401
  5. METOPROLOL [Concomitant]
     Active Substance: METOPROLOL
     Dates: start: 201401
  6. FUROSEMIDE [Concomitant]
     Active Substance: FUROSEMIDE
     Dates: start: 201401
  7. AMLODIPINE [Concomitant]
     Active Substance: AMLODIPINE BESYLATE
     Dates: start: 201401
  8. TADALAFIL [Concomitant]
     Active Substance: TADALAFIL
     Dates: start: 201401
  9. OZEMPIC [Concomitant]
     Active Substance: SEMAGLUTIDE
     Dates: start: 202001

REACTIONS (2)
  - Dysgeusia [Not Recovered/Not Resolved]
  - Pollakiuria [Not Recovered/Not Resolved]

NARRATIVE: CASE EVENT DATE: 20240821
